FAERS Safety Report 24395796 (Version 3)
Quarter: 2024Q4

REPORT INFORMATION
  Report Type: Spontaneous
  Country: IN (occurrence: IN)
  Receive Date: 20241004
  Receipt Date: 20241122
  Transmission Date: 20250115
  Serious: Yes (Life-Threatening, Hospitalization)
  Sender: STRIDES
  Company Number: None

PATIENT
  Age: 43 Year
  Sex: Male

DRUGS (2)
  1. PREDNISOLONE [Suspect]
     Active Substance: PREDNISOLONE
     Indication: Crohn^s disease
     Dosage: 1.8 GRAM, TOTAL (CUMULATIVE STEROID DOSE RECEIVED (G): 1.8 G)
     Route: 065
  2. AZATHIOPRINE [Suspect]
     Active Substance: AZATHIOPRINE
     Indication: Crohn^s disease
     Dosage: 2 MILLIGRAM/KILOGRAM (MAINTAINED AT A DOSE OF 2 MG/KG/MEAN DURATION AND DOSE OF AZATHIOPRINE RECEIVE
     Route: 065

REACTIONS (8)
  - Pulmonary cavitation [Unknown]
  - Shock [Unknown]
  - Respiratory distress [Unknown]
  - Mouth ulceration [Unknown]
  - Skin hyperpigmentation [Unknown]
  - Hypotension [Unknown]
  - Alopecia [Unknown]
  - Histoplasmosis disseminated [Recovered/Resolved]
